FAERS Safety Report 13698523 (Version 2)
Quarter: 2017Q3

REPORT INFORMATION
  Report Type: Report from Study
  Country: JP (occurrence: JP)
  Receive Date: 20170628
  Receipt Date: 20170706
  Transmission Date: 20171127
  Serious: Yes (Death)
  Sender: FDA-Public Use
  Company Number: JP-ASTRAZENECA-2017SE66585

PATIENT
  Age: 66 Year
  Sex: Male
  Weight: 59 kg

DRUGS (6)
  1. GLIMICRON [Concomitant]
     Active Substance: GLICLAZIDE
     Indication: TYPE 2 DIABETES MELLITUS
     Dosage: 80 MG, NUMBER OF SEPARATE DOSAGES/DAY UNKNOWN
     Route: 048
     Dates: end: 20161026
  2. MICAMLO [Concomitant]
     Active Substance: AMLODIPINE BESYLATE\TELMISARTAN
     Indication: HYPERTENSION
     Dosage: DOSE UNKNOWN, AP
     Route: 048
     Dates: start: 20161007, end: 20161104
  3. APLEWAY [Concomitant]
     Active Substance: TOFOGLIFLOZIN
     Indication: TYPE 2 DIABETES MELLITUS
     Dosage: 20 MG, NUMBER OF SEPARATE DOSAGES/DAY UNKNOWN
     Route: 048
     Dates: end: 20161026
  4. MICAMLO [Concomitant]
     Active Substance: AMLODIPINE BESYLATE\TELMISARTAN
     Indication: HYPERTENSION
     Dosage: 1 DF, NUMBER OF SEPARATE DOSAGES/DAY UNKNOWN, BP(MICARDIS (TELMISARTAN) 80 MG, AMLODIPINE (AMLODI...
     Route: 048
     Dates: end: 20161006
  5. BYDUREON [Suspect]
     Active Substance: EXENATIDE
     Indication: TYPE 2 DIABETES MELLITUS
     Route: 058
     Dates: start: 20150902, end: 20161026
  6. FK [Concomitant]
     Indication: CHRONIC GASTRITIS
     Dosage: 3.9 G, NUMBER OF SEPARATE DOSAGES/DAY UNKNOWN
     Route: 048
     Dates: start: 20160219, end: 20160415

REACTIONS (1)
  - Pancreatic carcinoma [Fatal]

NARRATIVE: CASE EVENT DATE: 20160916
